FAERS Safety Report 8268270-X (Version None)
Quarter: 2012Q2

REPORT INFORMATION
  Report Type: 
  Country: None (occurrence: None)
  Receive Date: 20120409
  Receipt Date: 20120330
  Transmission Date: 20120825
  Serious: Yes (Other)
  Sender: FDA-Public Use
  Company Number: PHHY2012DK027814

PATIENT
  Sex: Female

DRUGS (7)
  1. KLORZOXANZON [Concomitant]
     Route: 065
     Dates: start: 20120105
  2. LAMOTRGINE [Suspect]
     Dosage: 300 MG, QD
     Dates: start: 20120210
  3. LAMOTRGINE [Suspect]
     Dosage: 200 MG, QD
     Dates: start: 20111101
  4. LAMOTRGINE [Suspect]
     Dosage: 400 MG, QD
  5. LAMOTRGINE [Suspect]
     Indication: BIPOLAR I DISORDER
     Route: 065
     Dates: start: 20100930
  6. TRAMADOL HCL [Concomitant]
     Dosage: 50 MG, TID
     Route: 065
  7. IMOVANE [Concomitant]
     Dosage: 7.5 MG, QD

REACTIONS (1)
  - HAEMORRHAGIC DISORDER [None]
